FAERS Safety Report 6184422-7 (Version None)
Quarter: 2009Q2

REPORT INFORMATION
  Report Type: 
  Country: None (occurrence: None)
  Receive Date: 20090508
  Receipt Date: 20090430
  Transmission Date: 20091009
  Serious: Yes (Other)
  Sender: FDA-Public Use
  Company Number: B0573192A

PATIENT
  Age: 78 Year
  Sex: Male

DRUGS (6)
  1. AVANDAMET [Suspect]
     Dosage: 1TAB PER DAY
     Route: 048
     Dates: start: 20080501, end: 20090201
  2. ACECOMB [Concomitant]
     Indication: ARTERIAL DISORDER
     Dates: start: 20060101
  3. DIAMICRON [Concomitant]
     Dosage: 30MG PER DAY
     Dates: start: 20060101
  4. SIMVASTATIN [Concomitant]
     Dosage: 40MG PER DAY
     Dates: start: 20060101
  5. PLAVIX [Concomitant]
     Dates: start: 20060101
  6. AMLODIPINE BESYLATE [Concomitant]
     Indication: ARTERIAL DISORDER
     Dosage: 5MG PER DAY
     Dates: start: 20060101

REACTIONS (1)
  - NORMOCHROMIC NORMOCYTIC ANAEMIA [None]
